FAERS Safety Report 21665209 (Version 1)
Quarter: 2022Q4

REPORT INFORMATION
  Report Type: Spontaneous
  Country: GB (occurrence: GB)
  Receive Date: 20221130
  Receipt Date: 20221130
  Transmission Date: 20230113
  Serious: Yes (Hospitalization, Other)
  Sender: FDA-Public Use
  Company Number: None

PATIENT
  Age: 68 Year
  Sex: Female
  Weight: 92 kg

DRUGS (124)
  1. AMOXICILLIN [Suspect]
     Active Substance: AMOXICILLIN
     Indication: Abdominal discomfort
     Dosage: 125 MG/ 5 ML, THERAPY END DATE : NOT ASKED
     Route: 065
     Dates: start: 20210904
  2. AMOXICILLIN [Suspect]
     Active Substance: AMOXICILLIN
     Indication: Product used for unknown indication
     Dosage: 125 MG/ 5 ML
     Route: 065
  3. CARBAMAZEPINE [Suspect]
     Active Substance: CARBAMAZEPINE
     Indication: Product used for unknown indication
     Dosage: 750 MILLIGRAM DAILY; 750 MG, ONCE PER DAY, THERAPY END DATE : NOT ASKED
     Route: 065
     Dates: start: 20100917
  4. CARBAMAZEPINE [Suspect]
     Active Substance: CARBAMAZEPINE
     Indication: Depression
     Dosage: UNK,  UNK
     Route: 065
  5. CARBAMAZEPINE [Suspect]
     Active Substance: CARBAMAZEPINE
     Dosage: 750 MILLIGRAM DAILY; 750 MG, ONCE PER DAY, THERAPY END DATE : NOT ASKED
     Route: 065
     Dates: start: 20200917
  6. CARBAMAZEPINE [Suspect]
     Active Substance: CARBAMAZEPINE
     Dosage: 750 MILLIGRAM DAILY; 750 MG, ONCE PER DAY (QD)
     Route: 065
  7. CARBAMAZEPINE [Suspect]
     Active Substance: CARBAMAZEPINE
     Dosage: 750 MILLIGRAM DAILY; 750 MG, ONCE PER DAY, THERAPY END DATE : NOT ASKED
     Route: 065
     Dates: start: 20210917
  8. CARBAMAZEPINE [Suspect]
     Active Substance: CARBAMAZEPINE
     Dosage: 750 MILLIGRAM DAILY; 750 MG, ONCE PER DAY
     Route: 065
  9. CHARCOAL ACTIVATED [Suspect]
     Active Substance: ACTIVATED CHARCOAL
     Indication: Product used for unknown indication
     Dosage: 750 MG, UNK,  UNIT DOSE : 750 MG
     Route: 065
  10. CHARCOAL ACTIVATED [Suspect]
     Active Substance: ACTIVATED CHARCOAL
     Indication: Product used for unknown indication
     Dosage: 750 ,UNK, UNIT DOSE : 750 MG
     Route: 065
  11. CHARCOAL ACTIVATED [Suspect]
     Active Substance: ACTIVATED CHARCOAL
     Dosage: 750 MILLIGRAM DAILY; 750 MG, ONCE PER DAY
     Route: 065
  12. CHARCOAL ACTIVATED [Suspect]
     Active Substance: ACTIVATED CHARCOAL
     Dosage: 750 MG,  UNK,UNIT DOSE : 750 MG
     Route: 065
  13. CHARCOAL ACTIVATED [Suspect]
     Active Substance: ACTIVATED CHARCOAL
     Dosage: 750 MG,  UNK, UNIT DOSE : 750 MG
     Route: 065
  14. CIPROFLOXACIN [Suspect]
     Active Substance: CIPROFLOXACIN
     Indication: Abdominal discomfort
     Dosage: 1000 MILLIGRAM DAILY; 1000 MG, ONCE PER DAY (BATCH AND LOT TESTED AND FOUND WITHIN SPECIFICATIONS),
     Route: 065
     Dates: start: 20100917
  15. CIPROFLOXACIN [Suspect]
     Active Substance: CIPROFLOXACIN
     Indication: Depression
     Dosage: UNK,  UNK
     Route: 065
  16. CIPROFLOXACIN [Suspect]
     Active Substance: CIPROFLOXACIN
     Indication: Product used for unknown indication
     Dosage: 1000 MILLIGRAM DAILY; 1000 MG, ONCE PER DAY ( BATCH AND LOT TESTED AND FOUND WITHIN SPECIFICATIONS),
     Route: 065
     Dates: start: 20100917
  17. CIPROFLOXACIN [Suspect]
     Active Substance: CIPROFLOXACIN
     Indication: Rheumatoid arthritis
     Dosage: UNK,  UNK
     Route: 065
  18. CIPROFLOXACIN [Suspect]
     Active Substance: CIPROFLOXACIN
     Indication: Product used for unknown indication
     Dosage: UNK,  UNK
     Route: 065
  19. CIPROFLOXACIN [Suspect]
     Active Substance: CIPROFLOXACIN
     Indication: Product used for unknown indication
     Dosage: 1000 MILLIGRAM DAILY; 1000 MG, ONCE PER DAY (, BATCH AND LOT TESTED AND FOUND WITHIN SPECIFICATIONS)
     Route: 065
     Dates: start: 20200917
  20. CIPROFLOXACIN [Suspect]
     Active Substance: CIPROFLOXACIN
     Indication: Depression
     Dosage: 1000 MILLIGRAM DAILY; CIPROFLOXACIN HYDROCHLORIDE,  UNIT DOSE : 1000 MG, FREQUENCY ; 1 , FREQUENCY T
     Route: 065
     Dates: start: 20100917
  21. CIPROFLOXACIN [Suspect]
     Active Substance: CIPROFLOXACIN
     Indication: Rheumatoid arthritis
     Dosage: 1000 MILLIGRAM DAILY; CIPROFLOXACIN HYDROCHLORIDE,1000 MG, ONCE PER DAY, THERAPY END DATE : NOT ASKE
     Route: 065
     Dates: start: 20200917
  22. CIPROFLOXACIN [Suspect]
     Active Substance: CIPROFLOXACIN
     Indication: Abdominal discomfort
     Dosage: 1000 MILLIGRAM DAILY; CIPROFLOXACIN HYDROCHLORIDE,1000 MG, ONCE PER DAY, THERAPY END DATE : NOT ASKE
     Route: 065
  23. CIPROFLOXACIN [Suspect]
     Active Substance: CIPROFLOXACIN
     Dosage: 1000 MILLIGRAM DAILY; CIPROFLOXACIN HYDROCHLORIDE,1000 MG, ONCE PER DAY, THERAPY END DATE : NOT ASKE
     Route: 065
     Dates: start: 20100917
  24. CIPROFLOXACIN [Suspect]
     Active Substance: CIPROFLOXACIN
     Dosage: 1000 MILLIGRAM DAILY; CIPROFLOXACIN HYDROCHLORIDE,1000 MG, ONCE PER DAY, THERAPY END DATE : NOT ASKE
     Route: 065
  25. CIPROFLOXACIN [Suspect]
     Active Substance: CIPROFLOXACIN
     Dosage: 1000 MILLIGRAM DAILY; CIPROFLOXACIN HYDROCHLORIDE, THERAPY END DATE : NOT ASKED,  UNIT DOSE : 1000 M
     Route: 065
     Dates: start: 20100917
  26. CIPROFLOXACIN [Suspect]
     Active Substance: CIPROFLOXACIN
     Dosage: 1000 MILLIGRAM DAILY; CIPROFLOXACIN HYDROCHLORIDE,1000 MG, ONCE PER DAY, THERAPY END DATE : NOT ASKE
     Route: 065
     Dates: start: 20100917
  27. CIPROFLOXACIN [Suspect]
     Active Substance: CIPROFLOXACIN
     Dosage: 1000 MILLIGRAM DAILY;  CIPROFLOXACIN HYDROCHLORIDE,1000 MG, ONCE PER DAY, THERAPY END DATE : NOT ASK
     Route: 065
  28. METHOTREXATE [Suspect]
     Active Substance: METHOTREXATE
     Indication: Rheumatoid arthritis
     Dosage: UNK, PER WEEK (UNK UNK, QW)
     Route: 065
  29. METHOTREXATE [Suspect]
     Active Substance: METHOTREXATE
     Indication: Rheumatoid arthritis
     Dosage: UNK,UNK
     Route: 065
  30. METHOTREXATE [Suspect]
     Active Substance: METHOTREXATE
     Dosage: 18 MG, PER WEEK (18 MG, QW (UNK UNK, WEEKLY (AT 17.5, WEEKLY)), THERAPY END DATE : NOT ASKED
     Route: 065
     Dates: start: 20100917
  31. METHOTREXATE [Suspect]
     Active Substance: METHOTREXATE
     Dosage: 17.5 MG, PER WEEK (UNK UNK, WEEKLY (AT 17.5, WEEKLY)),THERAPY END DATE : NOT ASKED
     Route: 065
     Dates: start: 20100917
  32. METHOTREXATE [Suspect]
     Active Substance: METHOTREXATE
     Dosage: 18 MG, PER WEEK
     Route: 065
  33. METHOTREXATE [Suspect]
     Active Substance: METHOTREXATE
     Dosage: METHOTREXATE SODIUM, 18 MG, PER WEEK (UNKNOWN, WEEKLY, QW (AT 17.5, WEEKLY)), THERAPY END DATE : NOT
     Route: 065
     Dates: start: 20100917
  34. METHOTREXATE [Suspect]
     Active Substance: METHOTREXATE
     Dosage: 2.5 MILLIGRAM DAILY; METHOTREXATE SODIUM,  17.5 MG, PER WEEK (17.5 MILLIGRAM, Q.W., UNK UNK, Q.W., W
     Route: 065
     Dates: start: 20100917
  35. METHOTREXATE [Suspect]
     Active Substance: METHOTREXATE
     Dosage: METHOTREXATE SODIUM, AT 17.5 (UNKNOWN UNIT),), THERAPY END DATE : NOT ASKED;  UNKNOWN,  UNIT DOSE: 1
     Route: 065
     Dates: start: 20100917
  36. METHOTREXATE [Suspect]
     Active Substance: METHOTREXATE
     Dosage: METHOTREXATE SODIUM,UNK,  UNK ( WEEKLY (AT 17.5, WEEKLY), THERAPY END DATE : NOT ASKED,
     Route: 065
     Dates: start: 20100917
  37. VENLAFAXINE [Suspect]
     Active Substance: VENLAFAXINE HYDROCHLORIDE
     Indication: Rheumatoid arthritis
     Dosage: 225 MILLIGRAM DAILY; 225 MG, ONCE PER DAY,
     Route: 065
  38. VENLAFAXINE [Suspect]
     Active Substance: VENLAFAXINE HYDROCHLORIDE
     Indication: Depression
     Dosage: 225 MILLIGRAM DAILY; 225 MG, ONCE PER DAY
     Route: 065
  39. OMEPRAZOLE [Suspect]
     Active Substance: OMEPRAZOLE
     Indication: Product used for unknown indication
     Dosage: 80 MILLIGRAM DAILY; 80 MG, ONCE PER DAY, THERAPY END DATE : NOT ASKED
     Route: 065
     Dates: start: 20200917
  40. OMEPRAZOLE [Suspect]
     Active Substance: OMEPRAZOLE
     Indication: Abdominal discomfort
     Dosage: 20 MG, PER HOUR (480 MILLIGRAM DAILY; 20 MG, 2X/DAY)
     Route: 065
  41. OMEPRAZOLE [Suspect]
     Active Substance: OMEPRAZOLE
     Dosage: 40 MILLIGRAM DAILY; 20 MG, 2 TIMES PER DAY (20 MG, 2X/DAY)
     Route: 065
     Dates: start: 20100917
  42. OMEPRAZOLE [Suspect]
     Active Substance: OMEPRAZOLE
     Dosage: 80 MILLIGRAM DAILY; 40 MG, 2 TIMES PER DAY (40 MG, QD (20 MG, 2X/DAY)), THERAPY END DATE : NOT ASKED
     Route: 065
     Dates: start: 20100917
  43. OMEPRAZOLE [Suspect]
     Active Substance: OMEPRAZOLE
     Dosage: 20 MILLIGRAM DAILY; 20 MG, ONCE PER DAY
     Route: 065
  44. OMEPRAZOLE [Suspect]
     Active Substance: OMEPRAZOLE
     Dosage: 40 MILLIGRAM DAILY; 40 MG, ONCE PER DAY (20 MG, 2X/DAY FOR STOMACH;),THERAPY END DATE : NOT ASKED
     Route: 065
     Dates: start: 20100917
  45. OMEPRAZOLE [Suspect]
     Active Substance: OMEPRAZOLE
     Dosage: 80 MILLIGRAM DAILY; 80 MG, ONCE PER DAY
     Route: 065
  46. OMEPRAZOLE [Suspect]
     Active Substance: OMEPRAZOLE
     Dosage: 20 MG,  UNK (BID 40 MG, QD 2X/DAY), UNIT DOSE : 20 MG
     Route: 065
  47. OMEPRAZOLE [Suspect]
     Active Substance: OMEPRAZOLE
     Dosage: 20 MILLIGRAM DAILY; 20 MG, ONCE PER DAY,THERAPY END DATE : NOT ASKED
     Route: 065
     Dates: start: 20200917
  48. OMEPRAZOLE [Suspect]
     Active Substance: OMEPRAZOLE
     Dosage: 40 MILLIGRAM DAILY; 20 MG, 2 TIMES PER DAY (20 MG, BID  40 MG, QD 2X/DAY ),THERAPY END DATE : NOT AS
     Route: 065
     Dates: start: 20100917
  49. OMEPRAZOLE [Suspect]
     Active Substance: OMEPRAZOLE
     Dosage: 20 MILLIGRAM DAILY; 20 MG, ONCE PER DAY, THERAPY END DATE : NOT ASKED
     Route: 065
     Dates: start: 20100917
  50. OMEPRAZOLE [Suspect]
     Active Substance: OMEPRAZOLE
     Dosage: 80 MILLIGRAM DAILY; 80 MG, ONCE PER DAY (20 MG, 4 TIMES PER DAY), THERAPY END DATE : NOT ASKED
     Route: 065
     Dates: start: 20100917
  51. OMEPRAZOLE [Suspect]
     Active Substance: OMEPRAZOLE
     Dosage: 80 MILLIGRAM DAILY; 20 MG, 4 TIMES PER DAY, THERAPY END DATE : NOT ASKED
     Route: 065
     Dates: start: 20100917
  52. BIFIDOBACTERIUM LONGUM [Suspect]
     Active Substance: BIFIDOBACTERIUM LONGUM
     Indication: Abdominal discomfort
     Dosage: 750 MG, UNK, UNIT DOSE : 750 MG
     Route: 065
  53. BIFIDOBACTERIUM LONGUM [Suspect]
     Active Substance: BIFIDOBACTERIUM LONGUM
     Indication: Depression
     Dosage: UNK,UNK
     Route: 065
  54. CARBOCYSTEINE [Suspect]
     Active Substance: CARBOCYSTEINE
     Indication: Product used for unknown indication
     Dosage: 750 MILLIGRAM DAILY; 750 MG, ONCE PER DAY
     Route: 065
  55. CARBOCYSTEINE [Suspect]
     Active Substance: CARBOCYSTEINE
     Indication: Rheumatoid arthritis
     Dosage: 750 MILLIGRAM DAILY; 750 MG, ONCE PER DAY, THERAPY END DATE : NOT ASKED, THERAPY DURATION : 14 DAYS
     Route: 065
     Dates: start: 20200917
  56. CARBOCYSTEINE [Suspect]
     Active Substance: CARBOCYSTEINE
     Dosage: 750 MILLIGRAM DAILY; 750 MG, ONCE PER DAY , THERAPY END DATE : NOT ASKED, THERAPY DURATION : 2936 DA
     Route: 065
     Dates: start: 20120917
  57. CARBOCYSTEINE [Suspect]
     Active Substance: CARBOCYSTEINE
     Dosage: 750 MILLIGRAM DAILY; 750 MG, ONCE PER DAY
     Route: 065
  58. CARBOCYSTEINE [Suspect]
     Active Substance: CARBOCYSTEINE
     Dosage: 750 MILLIGRAM DAILY; 750 MG, ONCE PER DAY , THERAPY END DATE : NOT ASKED
     Route: 065
     Dates: start: 20210917
  59. CARBOCYSTEINE [Suspect]
     Active Substance: CARBOCYSTEINE
     Dosage: 750 MILLIGRAM DAILY; 750 MG, ONCE PER DAY, THERAPY END DATE : NOT ASKED
     Route: 065
     Dates: start: 20100917
  60. CARBOCYSTEINE [Suspect]
     Active Substance: CARBOCYSTEINE
     Dosage: UNK,  UNK
     Route: 065
  61. ENBREL [Suspect]
     Active Substance: ETANERCEPT
     Indication: Rheumatoid arthritis
     Dosage: 50 MG, PER WEEK (50 MG, QW, MYCLIC PEN), THERAPY END DATE : NOT ASKED
     Route: 058
     Dates: start: 20100917
  62. ENBREL [Suspect]
     Active Substance: ETANERCEPT
     Dosage: 50 MG, PER WEEK,QW, MYCLIC PEN, THERAPY END DATE : NOT ASKED
     Route: 065
     Dates: start: 20210917
  63. ENBREL [Suspect]
     Active Substance: ETANERCEPT
     Dosage: UNK, UNK (MYCLIC PEN)
     Route: 065
  64. GUANIDINE [Suspect]
     Active Substance: GUANIDINE
     Indication: Depression
     Dosage: UNK,  UNK
     Route: 065
  65. GUANIDINE [Suspect]
     Active Substance: GUANIDINE
     Indication: Abdominal discomfort
     Dosage: UNK, ONCE PER DAY (UNK UNK, QD (1,3-DIPHENYLGUANIDINE), FREQUENCY : 1 , FREQUENCY TIME : 1 DAYS
     Route: 065
  66. GUANIDINE [Suspect]
     Active Substance: GUANIDINE
     Indication: Product used for unknown indication
     Dosage: 750 MG, UNK (750 MG (1,3-DIPHENYLGUANIDINE)),  UNIT DOSE : 750 MG,
     Route: 065
  67. GUANIDINE [Suspect]
     Active Substance: GUANIDINE
     Dosage: 750 MILLIGRAM DAILY; 750 MG, ONCE PER DAY (1,3-DIPHENYLGUANIDINE))
     Route: 065
  68. GUANIDINE [Suspect]
     Active Substance: GUANIDINE
     Dosage: UNK,  UNK (1,3-DIPHENYLGUANIDINE)
     Route: 065
  69. GUANIDINE [Suspect]
     Active Substance: GUANIDINE
     Dosage: UNK,  UNK
     Route: 065
  70. LACTOBACILLUS RHAMNOSUS [Suspect]
     Active Substance: LACTOBACILLUS RHAMNOSUS
     Indication: Depression
     Dosage: UNK,  UNK
     Route: 065
  71. LACTOBACILLUS RHAMNOSUS [Suspect]
     Active Substance: LACTOBACILLUS RHAMNOSUS
     Indication: Abdominal discomfort
     Dosage: 750 MG, UNKNOWN.,  UNIT DOSE : 750 MG
     Route: 065
  72. PROBIOTICS NOS [Suspect]
     Active Substance: PROBIOTICS NOS
     Indication: Depression
     Dosage: 750 MG,   UNK,  UNIT DOSE : 750 MG
     Route: 065
  73. PROBIOTICS NOS [Suspect]
     Active Substance: PROBIOTICS NOS
     Indication: Abdominal discomfort
  74. PHYLLOCONTIN [Suspect]
     Active Substance: AMINOPHYLLINE
     Indication: Product used for unknown indication
     Dosage: 400 MILLIGRAM DAILY; 400 MG, ONCE PER DAY, THERAPY END DATE : NOT ASKED
     Route: 065
     Dates: start: 20200917
  75. PHYLLOCONTIN [Suspect]
     Active Substance: AMINOPHYLLINE
     Indication: Product used for unknown indication
     Dosage: 400 MILLIGRAM DAILY; 400 MG, ONCE PER DAY, THERAPY END DATE : NOT ASKED
     Route: 065
     Dates: start: 20100917
  76. PHYLLOCONTIN [Suspect]
     Active Substance: AMINOPHYLLINE
     Dosage: 400 MILLIGRAM DAILY; 400 MG, ONCE PER DAY
     Route: 065
  77. PHYLLOCONTIN [Suspect]
     Active Substance: AMINOPHYLLINE
     Dosage: 400 MILLIGRAM DAILY; 400 MG, ONCE PER DAY, THERAPY END DATE : NOT ASKED
     Route: 065
     Dates: start: 20200917
  78. PHYLLOCONTIN [Suspect]
     Active Substance: AMINOPHYLLINE
     Dosage: 400 MILLIGRAM DAILY; 400 MG, ONCE PER DAY, THERAPY END DATE : NOT ASKED
     Route: 065
     Dates: start: 20200917
  79. PHYLLOCONTIN [Suspect]
     Active Substance: AMINOPHYLLINE
     Dosage: 400 MILLIGRAM DAILY; 400 MG, ONCE PER DAY, THERAPY END DATE : NOT ASKED
     Route: 065
     Dates: start: 20100917
  80. PHYLLOCONTIN [Suspect]
     Active Substance: AMINOPHYLLINE
     Dosage: 400 MILLIGRAM DAILY; 400 MG, ONCE PER DAY, THERAPY END DATE : NOT ASKED
     Route: 065
     Dates: start: 20100917
  81. SULFAGUANIDINE [Suspect]
     Active Substance: SULFAGUANIDINE
     Indication: Abdominal discomfort
     Dosage: 750 MILLIGRAM DAILY; 750 MG,  ONCE PER DAY
     Route: 065
  82. SULFAGUANIDINE [Suspect]
     Active Substance: SULFAGUANIDINE
     Dosage: 750 MILLIGRAM DAILY; 750 MG, ONCE PER DAY
     Route: 065
  83. THEOPHYLLINE [Suspect]
     Active Substance: THEOPHYLLINE
     Indication: Depression
     Dosage: 750 MILLIGRAM DAILY; 750 MG, ONCE PER DAY
     Route: 065
  84. THEOPHYLLINE [Suspect]
     Active Substance: THEOPHYLLINE
     Dosage: 750 MILLIGRAM DAILY; 750 MG, ONCE PER DAY
     Route: 065
  85. VENLAFAXINE HYDROCHLORIDE [Suspect]
     Active Substance: VENLAFAXINE HYDROCHLORIDE
     Indication: Rheumatoid arthritis
     Dosage: UNK,  UNK
     Route: 065
  86. VENLAFAXINE HYDROCHLORIDE [Suspect]
     Active Substance: VENLAFAXINE HYDROCHLORIDE
     Indication: Depression
     Dosage: 225 MILLIGRAM DAILY; 225 MG, ONCE PER DAY ,PROLONGED RELEASE )
     Route: 065
  87. VENLAFAXINE HYDROCHLORIDE [Suspect]
     Active Substance: VENLAFAXINE HYDROCHLORIDE
     Indication: Depression
     Dosage: UNK,  UNK (UNKNOWN; ;)
     Route: 065
  88. VENLAFAXINE HYDROCHLORIDE [Suspect]
     Active Substance: VENLAFAXINE HYDROCHLORIDE
     Indication: Rheumatoid arthritis
     Dosage: 225 MILLIGRAM DAILY; 225 MG, ONCE PER DAY, PROLONGED RELEASE,
     Route: 065
  89. VENLAFAXINE HYDROCHLORIDE [Suspect]
     Active Substance: VENLAFAXINE HYDROCHLORIDE
     Indication: Product used for unknown indication
     Dosage: 225 MILLIGRAM DAILY; 225 MG, ONCE PER DAY
     Route: 065
  90. VENLAFAXINE HYDROCHLORIDE [Suspect]
     Active Substance: VENLAFAXINE HYDROCHLORIDE
     Dosage: UNIT DOSSE : 225 MG,  UNK (225 UNK)
     Route: 065
  91. VENLAFAXINE HYDROCHLORIDE [Suspect]
     Active Substance: VENLAFAXINE HYDROCHLORIDE
     Dosage: 225 MILLIGRAM DAILY; 225 MG, ONCE PER DAY
     Route: 065
  92. ZINC [Suspect]
     Active Substance: ZINC
     Indication: Depression
     Dosage: UNIT DOSE :750 MG,  UNK
     Route: 065
  93. ZINC [Suspect]
     Active Substance: ZINC
     Indication: Product used for unknown indication
     Dosage: UNK,  UNK
     Route: 065
  94. ZINC [Suspect]
     Active Substance: ZINC
     Indication: Abdominal discomfort
     Dosage: 750 MILLIGRAM DAILY; 750 MG,  ONCE PER DAY, (DIETHYLDITHIOCARBAMATE)
     Route: 065
  95. ZINC [Suspect]
     Active Substance: ZINC
     Dosage: UNK,  UNK (DIETHYLDITHIOCARBAMATE)
     Route: 065
  96. ACTIVATED CHARCOAL [Concomitant]
     Active Substance: ACTIVATED CHARCOAL
     Indication: Product used for unknown indication
     Dosage: 750 MG, UNK, UNIT DOSE : 750 MG
  97. VENLAFAXINE HYDROCHLORIDE [Concomitant]
     Active Substance: VENLAFAXINE HYDROCHLORIDE
     Indication: Rheumatoid arthritis
     Dosage: UNK,  UNK
     Route: 065
  98. VENLAFAXINE HYDROCHLORIDE [Concomitant]
     Active Substance: VENLAFAXINE HYDROCHLORIDE
     Indication: Depression
     Dosage: 225 MG, UNK, UNIT DOSE : 225 MG
  99. VENLAFAXINE HYDROCHLORIDE [Concomitant]
     Active Substance: VENLAFAXINE HYDROCHLORIDE
     Dosage: 225 MILLIGRAM DAILY; 225 MG, ONCE PER DAY (PROLONGED RELEASE)
     Route: 065
  100. IRBESARTAN [Concomitant]
     Active Substance: IRBESARTAN
     Indication: Depression
     Dosage: 150 MILLIGRAM DAILY; 150 MG, ONCE PER DAY, THERAPY END DATE : NOT ASKED
     Route: 065
     Dates: start: 20100912
  101. IRBESARTAN [Concomitant]
     Active Substance: IRBESARTAN
     Indication: Product used for unknown indication
     Dosage: 150 GRAM DAILY; 150 G, ONCE PER DAY
     Route: 065
  102. IRBESARTAN [Concomitant]
     Active Substance: IRBESARTAN
     Indication: Abdominal discomfort
     Dosage: 150 GRAM DAILY; 150 G, ONCE PER DAY, THERAPY END DATE : NOT ASKED
     Route: 065
     Dates: start: 20100917
  103. IRBESARTAN [Concomitant]
     Active Substance: IRBESARTAN
     Dosage: 150 GRAM DAILY; 150 G, ONCE PER DAY, THERAPY END DATE : NOT ASKED
     Route: 065
     Dates: start: 20100912
  104. IRBESARTAN [Concomitant]
     Active Substance: IRBESARTAN
     Dosage: 150 GRAM DAILY; 150 G, ONCE PER DAY, THERAPY END DATE : NOT ASKED
     Route: 065
     Dates: start: 20100917
  105. IRBESARTAN [Concomitant]
     Active Substance: IRBESARTAN
     Dosage: 150 GRAM DAILY; 150 G, ONCE PER DAY, THERAPY END DATE : NOT ASKED
     Route: 065
     Dates: start: 20100917
  106. IRBESARTAN [Concomitant]
     Active Substance: IRBESARTAN
     Dosage: 150 MILLIGRAM DAILY; 150 MG, ONCE PER DAY 150 MG,THERAPY END DATE : NOT ASKED
     Route: 065
     Dates: start: 20100917
  107. BENDROFLUMETHIAZIDE [Concomitant]
     Active Substance: BENDROFLUMETHIAZIDE
     Indication: Pituitary tumour
     Dosage: UNK,  UNK
     Route: 065
  108. BENDROFLUMETHIAZIDE [Concomitant]
     Active Substance: BENDROFLUMETHIAZIDE
     Indication: Depression
     Dosage: UNK,  UNK
     Route: 065
  109. BENDROFLUMETHIAZIDE [Concomitant]
     Active Substance: BENDROFLUMETHIAZIDE
     Indication: Product used for unknown indication
     Dosage: UNK,  UNK
     Route: 065
  110. BENDROFLUMETHIAZIDE [Concomitant]
     Active Substance: BENDROFLUMETHIAZIDE
     Dosage: UNIT DOSE: 750 MG, UNK
     Route: 065
  111. CABERGOLINE [Concomitant]
     Active Substance: CABERGOLINE
     Indication: Product used for unknown indication
     Dosage: UNK,  UNK
     Route: 065
  112. CABERGOLINE [Concomitant]
     Active Substance: CABERGOLINE
     Indication: Empty sella syndrome
     Dosage: UNK,  UNK
     Route: 065
  113. CABERGOLINE [Concomitant]
     Active Substance: CABERGOLINE
     Indication: Pituitary tumour
     Dosage: UNK,  UNK
     Route: 065
  114. CABERGOLINE [Concomitant]
     Active Substance: CABERGOLINE
     Indication: Pituitary tumour
  115. CETIRIZINE [Concomitant]
     Active Substance: CETIRIZINE HYDROCHLORIDE
     Indication: Product used for unknown indication
     Dosage: UNK,  UNK
     Route: 065
  116. CETIRIZINE [Concomitant]
     Active Substance: CETIRIZINE HYDROCHLORIDE
     Indication: Abdominal discomfort
     Dosage: UNK,  UNK
     Route: 065
  117. DOXYCYCLINE [Concomitant]
     Active Substance: DOXYCYCLINE
     Indication: Pulmonary pain
     Dosage: UNK,  UNK
  118. EZETIMIBE [Concomitant]
     Active Substance: EZETIMIBE
     Indication: Product used for unknown indication
     Dosage: UNK,  UNK
     Route: 065
  119. FOLIC ACID [Concomitant]
     Active Substance: FOLIC ACID
     Indication: Product used for unknown indication
     Dosage: UNK,  UNK
     Route: 065
  120. FOLIC ACID [Concomitant]
     Active Substance: FOLIC ACID
     Dosage: UNK,  UNK
     Route: 065
  121. LEVOTHYROXINE [Concomitant]
     Active Substance: LEVOTHYROXINE
     Indication: Product used for unknown indication
     Dosage: UNK,  UNK
     Route: 016
  122. LEVOTHYROXINE [Concomitant]
     Active Substance: LEVOTHYROXINE
     Indication: Abdominal discomfort
     Dosage: UNK,  UNK
     Route: 016
  123. ORUVAIL [Concomitant]
     Active Substance: KETOPROFEN
     Indication: Empty sella syndrome
     Dosage: UNK,  UNK
     Route: 065
  124. ORUVAIL [Concomitant]
     Active Substance: KETOPROFEN
     Indication: Product used for unknown indication
     Dosage: UNK,  UNK
     Route: 065

REACTIONS (13)
  - Lower respiratory tract infection [Not Recovered/Not Resolved]
  - Rash [Not Recovered/Not Resolved]
  - Pulmonary pain [Unknown]
  - Knee arthroplasty [Unknown]
  - Arthropathy [Unknown]
  - Abdominal discomfort [Unknown]
  - Obesity [Unknown]
  - Amyloid arthropathy [Unknown]
  - Overdose [Unknown]
  - Drug abuse [Unknown]
  - Product dose omission issue [Unknown]
  - Intentional product misuse [Unknown]
  - Off label use [Unknown]

NARRATIVE: CASE EVENT DATE: 20201001
